FAERS Safety Report 15373163 (Version 2)
Quarter: 2018Q4

REPORT INFORMATION
  Report Type: Spontaneous
  Country: US (occurrence: US)
  Receive Date: 20180912
  Receipt Date: 20181003
  Transmission Date: 20190204
  Serious: No
  Sender: FDA-Public Use
  Company Number: US-B.I. PHARMACEUTICALS,INC./RIDGEFIELD-2018-BI-044609

PATIENT
  Age: 78 Year
  Sex: Male

DRUGS (6)
  1. TAMULOSIN [Concomitant]
     Active Substance: TAMSULOSIN
     Indication: PROSTATIC DISORDER
     Dosage: 0.4MG;  FORM STRENGTH: 0.4MG; FORMULATION: TABLET
     Route: 048
  2. STIOLTO RESPIMAT [Suspect]
     Active Substance: OLODATEROL HYDROCHLORIDE\TIOTROPIUM BROMIDE MONOHYDRATE
     Indication: CHRONIC OBSTRUCTIVE PULMONARY DISEASE
     Dosage: ONCE DAILY;  FORM STRENGTH: 2.5 MCG; FORMULATION: INHALATION SPRAY ACTION PRODUCT: DOSE NOT CHANGED
     Route: 055
     Dates: start: 20180801
  3. COZAAR [Concomitant]
     Active Substance: LOSARTAN POTASSIUM
     Indication: PRODUCT USED FOR UNKNOWN INDICATION
     Dosage: FORM STRENGTH: 100MG; FORMULATION: TABLET
     Route: 048
  4. LOSARTIN [Concomitant]
     Active Substance: LOSARTAN
     Indication: HYPERTENSION
     Dosage: ONCE DAILY;  FORM STRENGTH: 1OOMG; FORMULATION: TABLET
     Route: 048
  5. TOMOPTIC [Concomitant]
     Indication: PRODUCT USED FOR UNKNOWN INDICATION
     Route: 065
  6. MAXZIDE [Concomitant]
     Active Substance: HYDROCHLOROTHIAZIDE\TRIAMTERENE
     Indication: JOINT SWELLING
     Dosage: ONCE DAILY;  FORM STRENGTH: 25/37.5MG; FORMULATION: TABLET
     Route: 048

REACTIONS (1)
  - Mucosal discolouration [Not Recovered/Not Resolved]

NARRATIVE: CASE EVENT DATE: 201808
